FAERS Safety Report 4792442-X (Version None)
Quarter: 2005Q4

REPORT INFORMATION
  Report Type: 
  Country: None (occurrence: None)
  Receive Date: 20051010
  Receipt Date: 20050922
  Transmission Date: 20060501
  Serious: Yes (Other)
  Sender: FDA-Public Use
  Company Number: US-GLAXOSMITHKLINE-A0575466A

PATIENT
  Age: 89 Year
  Sex: Male

DRUGS (3)
  1. LANOXIN [Suspect]
     Indication: ATRIAL FIBRILLATION
     Dosage: .125MG PER DAY
     Route: 048
  2. COUMADIN [Concomitant]
  3. ARANESP [Concomitant]

REACTIONS (1)
  - CARDIOACTIVE DRUG LEVEL INCREASED [None]
